FAERS Safety Report 5351347-6 (Version None)
Quarter: 2007Q2

REPORT INFORMATION
  Report Type: 
  Country: None (occurrence: None)
  Receive Date: 20070608
  Receipt Date: 20070601
  Transmission Date: 20071010
  Serious: Yes (Other)
  Sender: FDA-Public Use
  Company Number: US-BOEHRINGER INGELHEIM PHARMACEUTICALS, INC.-2007-BP-06753BP

PATIENT
  Sex: Male

DRUGS (1)
  1. FLOMAX [Suspect]
     Indication: PROSTATE EXAMINATION ABNORMAL

REACTIONS (3)
  - FLOPPY IRIS SYNDROME [None]
  - PUPIL FIXED [None]
  - RETINAL DISORDER [None]
